FAERS Safety Report 13403829 (Version 1)
Quarter: 2017Q2

REPORT INFORMATION
  Report Type: Report from Study
  Country: US (occurrence: US)
  Receive Date: 20170405
  Receipt Date: 20170405
  Transmission Date: 20170830
  Serious: Yes (Other)
  Sender: FDA-Public Use
  Company Number: US-AMGEN-USASL2017050078

PATIENT
  Age: 81 Year
  Sex: Male

DRUGS (1)
  1. ENBREL [Suspect]
     Active Substance: ETANERCEPT
     Indication: PSORIATIC ARTHROPATHY
     Dosage: UNK
     Route: 065

REACTIONS (8)
  - Acoustic stimulation tests abnormal [Unknown]
  - Nasal neoplasm [Unknown]
  - Nerve compression [Unknown]
  - Scoliosis [Unknown]
  - Ear neoplasm [Unknown]
  - Gait disturbance [Unknown]
  - Gout [Unknown]
  - Hypertension [Recovered/Resolved]
